FAERS Safety Report 24097017 (Version 1)
Quarter: 2024Q3

REPORT INFORMATION
  Report Type: Spontaneous
  Country: US (occurrence: US)
  Receive Date: 20240716
  Receipt Date: 20240716
  Transmission Date: 20241017
  Serious: No
  Sender: GRIFOLS
  Company Number: US-RIGEL PHARMACEUTICALS, INC.-2024FOS000405

PATIENT
  Sex: Female

DRUGS (7)
  1. HUMAN IMMUNOGLOBULIN G [Suspect]
     Active Substance: HUMAN IMMUNOGLOBULIN G
     Indication: Product used for unknown indication
     Dosage: 3 UNKNOWN, TOTAL
     Route: 042
  2. TAVALISSE [Concomitant]
     Active Substance: FOSTAMATINIB
     Indication: Immune thrombocytopenia
     Dosage: 100 MILLIGRAM, BID
     Route: 048
     Dates: start: 20240320
  3. TAVALISSE [Concomitant]
     Active Substance: FOSTAMATINIB
     Dosage: 100 MG, BID
     Route: 048
     Dates: start: 20240320, end: 2024
  4. TAVALISSE [Concomitant]
     Active Substance: FOSTAMATINIB
     Dosage: 100 MG, BID
     Route: 048
     Dates: start: 2024
  5. PEPTO-BISMOL [Concomitant]
     Active Substance: BISMUTH SUBSALICYLATE
     Indication: Abdominal pain upper
  6. GAS-X [Concomitant]
     Active Substance: DIMETHICONE
     Indication: Abdominal pain upper
  7. PEPCID AC [Concomitant]
     Active Substance: FAMOTIDINE
     Indication: Abdominal pain upper

REACTIONS (4)
  - Migraine [Unknown]
  - Blood pressure increased [Unknown]
  - Hot flush [Unknown]
  - Hyperhidrosis [Unknown]

NARRATIVE: CASE EVENT DATE: 20240101
